FAERS Safety Report 6386772-8 (Version None)
Quarter: 2009Q4

REPORT INFORMATION
  Report Type: 
  Country: None (occurrence: None)
  Receive Date: 20091002
  Receipt Date: 20090928
  Transmission Date: 20100525
  Serious: Yes (Hospitalization)
  Sender: FDA-Public Use
  Company Number: A0809993A

PATIENT
  Sex: Female
  Weight: 18 kg

DRUGS (2)
  1. SERETIDE [Suspect]
     Dosage: 2PUFF TWICE PER DAY
     Dates: start: 20060101
  2. SINGULAIR [Concomitant]
     Dosage: 1TAB PER DAY
     Dates: start: 20060101

REACTIONS (2)
  - ATELECTASIS [None]
  - PNEUMONIA [None]
